FAERS Safety Report 5389242-9 (Version None)
Quarter: 2007Q3

REPORT INFORMATION
  Report Type: 
  Country: None (occurrence: None)
  Receive Date: 20070717
  Receipt Date: 20070711
  Transmission Date: 20080115
  Serious: Yes (Life-Threatening, Hospitalization, Disabling, Other)
  Sender: FDA-Public Use
  Company Number: A0663367A

PATIENT
  Age: 56 Year
  Sex: Female

DRUGS (2)
  1. ARIXTRA [Suspect]
     Indication: ANTIPHOSPHOLIPID SYNDROME
     Dosage: 5MG PER DAY
     Route: 058
     Dates: start: 20070629, end: 20070711
  2. ASPIRIN [Concomitant]

REACTIONS (2)
  - CEREBRAL HAEMORRHAGE [None]
  - SUBARACHNOID HAEMORRHAGE [None]
